FAERS Safety Report 19724398 (Version 1)
Quarter: 2021Q3

REPORT INFORMATION
  Report Type: Spontaneous
  Country: US (occurrence: US)
  Receive Date: 20210819
  Receipt Date: 20210819
  Transmission Date: 20211014
  Serious: No
  Sender: FDA-Public Use
  Company Number: US-AMNEAL PHARMACEUTICALS-2021-AMRX-01442

PATIENT
  Age: 45 Year
  Sex: Male

DRUGS (4)
  1. DOXEPIN HYDROCHLORIDE. [Suspect]
     Active Substance: DOXEPIN HYDROCHLORIDE
     Indication: INSOMNIA
     Dosage: 1 CAPSULES, BEDTIME
     Route: 048
     Dates: start: 202104, end: 202104
  2. DOXEPIN HYDROCHLORIDE. [Suspect]
     Active Substance: DOXEPIN HYDROCHLORIDE
     Dosage: 2 CAPSULES, BEDTIME (DOUBLING DOSE)
     Route: 048
     Dates: start: 202104, end: 202104
  3. DOXEPIN HYDROCHLORIDE. [Suspect]
     Active Substance: DOXEPIN HYDROCHLORIDE
     Dosage: 1 CAPSULES, BEDTIME
     Route: 048
     Dates: start: 202101, end: 202104
  4. DOXEPIN HYDROCHLORIDE. [Suspect]
     Active Substance: DOXEPIN HYDROCHLORIDE
     Dosage: 1 CAPSULES, BEDTIME
     Route: 048
     Dates: start: 202104

REACTIONS (1)
  - Drug ineffective [Not Recovered/Not Resolved]

NARRATIVE: CASE EVENT DATE: 202104
